FAERS Safety Report 4279654-9 (Version None)
Quarter: 2004Q1

REPORT INFORMATION
  Report Type: 
  Country: None (occurrence: None)
  Receive Date: 20040123
  Receipt Date: 20040113
  Transmission Date: 20041129
  Serious: Yes (Hospitalization)
  Sender: FDA-Public Use
  Company Number: US-JNJFOC-20030800741

PATIENT
  Age: 48 Year
  Sex: Male
  Weight: 78.0187 kg

DRUGS (16)
  1. REMICADE [Suspect]
     Indication: CROHN'S DISEASE
     Dosage: SEE IMAGE
     Route: 042
     Dates: start: 20030630, end: 20030630
  2. REMICADE [Suspect]
     Indication: PYODERMA GANGRENOSUM
     Dosage: SEE IMAGE
     Route: 042
     Dates: start: 20030630, end: 20030630
  3. REMICADE [Suspect]
     Indication: CROHN'S DISEASE
     Dosage: SEE IMAGE
     Route: 042
     Dates: start: 20020101
  4. REMICADE [Suspect]
     Indication: PYODERMA GANGRENOSUM
     Dosage: SEE IMAGE
     Route: 042
     Dates: start: 20020101
  5. BIAXIN [Suspect]
     Indication: DRUG USE FOR UNKNOWN INDICATION
  6. PREVACID [Concomitant]
     Indication: DRUG USE FOR UNKNOWN INDICATION
  7. AMOXICILLIN [Suspect]
     Indication: DRUG USE FOR UNKNOWN INDICATION
  8. MERCAPTOPURINE [Concomitant]
  9. EMULOSE (LACTULOSE) [Concomitant]
  10. ALDACTONE [Concomitant]
  11. LASIX [Concomitant]
  12. SULFASALAZINE [Concomitant]
  13. MVI (MULTIVITAMIN) [Concomitant]
  14. IRON (IRON) [Concomitant]
  15. FETINIC (ALL OTHER THERAPEUTIC PRODUCTS) [Concomitant]
  16. VITAMIN C (ASCORBIC ACID) [Concomitant]

REACTIONS (19)
  - ARTHRALGIA [None]
  - BREAST MASS [None]
  - CHOLANGITIS SCLEROSING [None]
  - CONFUSIONAL STATE [None]
  - CROHN'S DISEASE [None]
  - DERMATITIS [None]
  - DYSPNOEA [None]
  - FATIGUE [None]
  - FLUID RETENTION [None]
  - GASTRITIS [None]
  - HEPATIC CIRRHOSIS [None]
  - HEPATIC ENCEPHALOPATHY [None]
  - HYPOALBUMINAEMIA [None]
  - IRON DEFICIENCY ANAEMIA [None]
  - MALNUTRITION [None]
  - OEDEMA PERIPHERAL [None]
  - RECTAL POLYP [None]
  - REFUSAL OF TREATMENT BY PATIENT [None]
  - WEIGHT INCREASED [None]
